FAERS Safety Report 16831759 (Version 2)
Quarter: 2019Q4

REPORT INFORMATION
  Report Type: Spontaneous
  Country: FR (occurrence: FR)
  Receive Date: 20190920
  Receipt Date: 20191025
  Transmission Date: 20200122
  Serious: Yes (Life-Threatening, Other)
  Sender: FDA-Public Use
  Company Number: FR-BRISTOL-MYERS SQUIBB COMPANY-BMS-2019-090218

PATIENT
  Age: 37 Year
  Sex: Male

DRUGS (8)
  1. PARACETAMOL B. BRAUN [Suspect]
     Active Substance: ACETAMINOPHEN
     Indication: PAIN PROPHYLAXIS
     Dosage: PARACETAMOL B BRAUN 10MG/ML SOLUTION POUR PERFUSION, SINGLE DOSE
     Route: 042
     Dates: start: 20171011
  2. VANCOMYCINE SANDOZ [Suspect]
     Active Substance: VANCOMYCIN
     Indication: ANTIBIOTIC PROPHYLAXIS
     Dosage: VANCOMYCINE SANDOZ 1G, POUDRE POUR SOLUTION POUR PERFUSION, VIA SYRINGE PUMP
     Route: 041
     Dates: start: 20171011, end: 20171011
  3. AZACTAM [Suspect]
     Active Substance: AZTREONAM
     Indication: ANTIBIOTIC PROPHYLAXIS
     Dosage: AZACTAM POUDRE ET SOLUTION POUR USAGE PARENTERAL (AZTREONAM), POWDER AND SOLUTION FOR PARENTERALUSE
     Route: 040
     Dates: start: 20171011, end: 20171011
  4. PROPOFOL PANPHARMA [Suspect]
     Active Substance: PROPOFOL
     Indication: INDUCTION OF ANAESTHESIA
     Dosage: UNK
     Route: 042
     Dates: start: 20171011, end: 20171011
  5. VANCOMYCINE SANDOZ [Suspect]
     Active Substance: VANCOMYCIN
     Indication: PRODUCT USED FOR UNKNOWN INDICATION
     Dosage: 1 GRAM
     Route: 041
     Dates: end: 20171011
  6. GENTAMICINE PANPHARMA [Suspect]
     Active Substance: GENTAMICIN
     Indication: ANTIBIOTIC PROPHYLAXIS
     Dosage: GENTAMICINE PANPHARMA 40MG, SOLUTION INJECTABLE, SINGLE DOSE
     Route: 040
     Dates: start: 20171011, end: 20171011
  7. METHADONE [Concomitant]
     Active Substance: METHADONE HYDROCHLORIDE
     Indication: DRUG DEPENDENCE
     Route: 065
  8. COCAINE [Concomitant]
     Active Substance: COCAINE
     Indication: PRODUCT USED FOR UNKNOWN INDICATION
     Route: 065

REACTIONS (8)
  - Localised oedema [Recovering/Resolving]
  - Urticaria [Unknown]
  - Anaphylactic shock [Recovered/Resolved]
  - Tachycardia [Unknown]
  - Face oedema [Unknown]
  - Blood pressure diastolic decreased [Unknown]
  - Pallor [Unknown]
  - Dyspnoea [Unknown]

NARRATIVE: CASE EVENT DATE: 20171011
